FAERS Safety Report 8573682-0 (Version None)
Quarter: 2012Q3

REPORT INFORMATION
  Report Type: 
  Country: None (occurrence: None)
  Receive Date: 20120806
  Receipt Date: 20120730
  Transmission Date: 20120928
  Serious: Yes (Death, Hospitalization)
  Sender: FDA-Public Use
  Company Number: US-GLAXOSMITHKLINE-A0899163A

PATIENT
  Age: 75 Year
  Sex: Female
  Weight: 70.5 kg

DRUGS (6)
  1. AVANDIA [Suspect]
     Indication: DIABETES MELLITUS
     Dosage: 4MG PER DAY
     Route: 048
     Dates: start: 20020101, end: 20050101
  2. ATENOLOL [Concomitant]
  3. METFORMIN HYDROCHLORIDE [Concomitant]
  4. GLIPIZIDE [Concomitant]
  5. ACCUPRIL [Concomitant]
  6. ZETIA [Concomitant]

REACTIONS (6)
  - CARDIOGENIC SHOCK [None]
  - ACUTE MYOCARDIAL INFARCTION [None]
  - CORONARY ARTERY DISEASE [None]
  - HYPOXIC-ISCHAEMIC ENCEPHALOPATHY [None]
  - CARDIAC FAILURE CONGESTIVE [None]
  - VENTRICULAR FIBRILLATION [None]
